FAERS Safety Report 15949639 (Version 2)
Quarter: 2020Q3

REPORT INFORMATION
  Report Type: Report from Study
  Country: US (occurrence: US)
  Receive Date: 20190211
  Receipt Date: 20200703
  Transmission Date: 20201102
  Serious: Yes (Other)
  Sender: FDA-Public Use
  Company Number: US-BRISTOL-MYERS SQUIBB COMPANY-BMS-2019-012171

PATIENT

DRUGS (1)
  1. NIVOLUMAB [Suspect]
     Active Substance: NIVOLUMAB
     Indication: ACUTE MYELOID LEUKAEMIA
     Dosage: 3 MG/KG, Q2WK FOR 6 MONTHS AND EVERY 4 WEEKS UNTIL 12 MONTHS ON STUDY AND EVERY 3 MONTHS UNTIL RELAP
     Route: 042

REACTIONS (1)
  - Autoimmune haemolytic anaemia [Unknown]
